FAERS Safety Report 21644039 (Version 1)
Quarter: 2022Q4

REPORT INFORMATION
  Report Type: Spontaneous
  Country: NL (occurrence: NL)
  Receive Date: 20221125
  Receipt Date: 20221125
  Transmission Date: 20230113
  Serious: Yes (Hospitalization)
  Sender: FDA-Public Use
  Company Number: None

PATIENT
  Sex: Female
  Weight: 90 kg

DRUGS (1)
  1. ETANERCEPT [Suspect]
     Active Substance: ETANERCEPT
     Indication: Rheumatic disorder
     Dosage: 1X PER WEEK, 50MG/ML; WWSP 1ML
     Route: 065
     Dates: start: 20220301, end: 20220401

REACTIONS (2)
  - Multiple sclerosis [Recovering/Resolving]
  - Product use in unapproved indication [Unknown]
